FAERS Safety Report 18986505 (Version 1)
Quarter: 2021Q1

REPORT INFORMATION
  Report Type: Spontaneous
  Country: US (occurrence: US)
  Receive Date: 20210308
  Receipt Date: 20210308
  Transmission Date: 20210420
  Serious: Yes (Other)
  Sender: FDA-Public Use
  Company Number: None

PATIENT
  Age: 54 Year
  Sex: Male

DRUGS (3)
  1. ALARIS PUMP [Suspect]
     Active Substance: DEVICE
  2. VERSED [Suspect]
     Active Substance: MIDAZOLAM HYDROCHLORIDE
  3. PROPOFOL. [Suspect]
     Active Substance: PROPOFOL

REACTIONS (5)
  - Incorrect dose administered [None]
  - Apnoea [None]
  - Oxygen saturation decreased [None]
  - Incorrect drug administration rate [None]
  - Unresponsive to stimuli [None]

NARRATIVE: CASE EVENT DATE: 20210303
